FAERS Safety Report 8330377 (Version 38)
Quarter: 2019Q2

REPORT INFORMATION
  Report Type: Report from Study
  Country: CA (occurrence: CA)
  Receive Date: 20120111
  Receipt Date: 20190523
  Transmission Date: 20190711
  Serious: Yes (Other)
  Sender: FDA-Public Use
  Company Number: PHHY2011CA53299

PATIENT
  Sex: Male

DRUGS (5)
  1. SANDOSTATIN LAR DEPOT [Suspect]
     Active Substance: OCTREOTIDE ACETATE
     Dosage: 30 MG, QMO (EVERY 4 WEEKS)
     Route: 030
  2. SANDOSTATIN LAR DEPOT [Suspect]
     Active Substance: OCTREOTIDE ACETATE
     Indication: ACROMEGALY
     Dosage: 20 MG EVERY 4 WEEKS
     Route: 030
     Dates: start: 20050511
  3. SANDOSTATIN LAR DEPOT [Suspect]
     Active Substance: OCTREOTIDE ACETATE
     Dosage: 30 MG, EVERY 3 WEEKS
     Route: 030
  4. SANDOSTATIN LAR DEPOT [Suspect]
     Active Substance: OCTREOTIDE ACETATE
     Dosage: 20 MG, QMO (EVERY 4 WEEKS)
     Route: 030
     Dates: start: 20130705
  5. TYLENOL [Concomitant]
     Active Substance: ACETAMINOPHEN
     Indication: PRODUCT USED FOR UNKNOWN INDICATION
     Dosage: UNK, PRN (AS NEEDED)
     Route: 065

REACTIONS (15)
  - Fall [Unknown]
  - Blood urine present [Unknown]
  - Back injury [Unknown]
  - Dyspnoea [Unknown]
  - Fractured coccyx [Unknown]
  - Peripheral swelling [Unknown]
  - Blood pressure increased [Unknown]
  - Paraesthesia [Unknown]
  - Vision blurred [Unknown]
  - Inappropriate schedule of product administration [Unknown]
  - Sleep apnoea syndrome [Unknown]
  - Pain [Unknown]
  - Benign hepatic neoplasm [Unknown]
  - Hepatic steatosis [Unknown]
  - Headache [Unknown]

NARRATIVE: CASE EVENT DATE: 2014
